FAERS Safety Report 25733592 (Version 1)
Quarter: 2025Q3

REPORT INFORMATION
  Report Type: Spontaneous
  Country: CA (occurrence: CA)
  Receive Date: 20250828
  Receipt Date: 20250828
  Transmission Date: 20251021
  Serious: Yes (Life-Threatening, Hospitalization, Other)
  Sender: Kenvue
  Company Number: CA-KENVUE-20250808199

PATIENT

DRUGS (53)
  1. ACETAMINOPHEN [Suspect]
     Active Substance: ACETAMINOPHEN
     Indication: Pain
     Dosage: 1000.0 MILLIGRAM, TWICE A DAY (2 EVERY 1 DAYS)
     Route: 048
  2. ACETAMINOPHEN [Suspect]
     Active Substance: ACETAMINOPHEN
     Indication: Pain
     Dosage: 650.0 MILLIGRAM, TWICE A DAY (2 EVERY 1 DAYS)
     Route: 048
  3. CLOZAPINE [Suspect]
     Active Substance: CLOZAPINE
     Indication: Schizoaffective disorder
     Dosage: 50.0 MILLIGRAM, ONCE A DAY (1 EVERY 1 DAYS)
     Route: 048
  4. CLOZAPINE [Suspect]
     Active Substance: CLOZAPINE
     Dosage: 25.0 MILLIGRAM, ONCE A DAY (1 EVERY 1 DAYS)
     Route: 048
  5. CLOZAPINE [Suspect]
     Active Substance: CLOZAPINE
     Dosage: 200.0 MILLIGRAM, ONCE A DAY (1 EVERY 24 HOURS)
     Route: 048
  6. CLOZAPINE [Suspect]
     Active Substance: CLOZAPINE
     Indication: Schizoaffective disorder
     Dosage: 400.0 MILLIGRAM, ONCE A DAY (1 EVERY 1 DAYS)
     Route: 048
  7. FENTANYL [Suspect]
     Active Substance: FENTANYL
     Indication: Product used for unknown indication
     Route: 065
  8. ASPIRIN [Concomitant]
     Active Substance: ASPIRIN
     Indication: Product used for unknown indication
     Dosage: 81 MILLIGRAM, ONCE A DAY (1 EVERY 24 HOURS)
     Route: 048
  9. ALEVE [Concomitant]
     Active Substance: NAPROXEN SODIUM
     Indication: Pain
     Dosage: 220.0 MILLIGRAM, TWICE A DAY (2 EVERY 1 DAYS)
     Route: 048
  10. Aluminium magnesium hydroxide [Concomitant]
     Indication: Dyspepsia
     Dosage: UNK, EVERY 2 HOUR (1 EVERY 2 HOURS)
     Route: 048
  11. ATORVASTATIN [Concomitant]
     Active Substance: ATORVASTATIN
     Indication: Product used for unknown indication
     Dosage: 40.0 MILLIGRAM, ONCE A DAY (1 EVERY 24 HOURS)
     Route: 048
  12. ATROVENT HFA [Concomitant]
     Active Substance: IPRATROPIUM BROMIDE
     Indication: Wheezing
     Dosage: 2 DOSAGE FORM, EVERY 4 HOUR (1 EVERY 4 HOURS)
     Route: 065
  13. ATROVENT HFA [Concomitant]
     Active Substance: IPRATROPIUM BROMIDE
     Indication: Dyspnoea
  14. ATROVENT HFA [Concomitant]
     Active Substance: IPRATROPIUM BROMIDE
     Indication: Wheezing
     Route: 065
  15. ATROVENT HFA [Concomitant]
     Active Substance: IPRATROPIUM BROMIDE
     Indication: Dyspnoea
  16. BACLOFEN [Concomitant]
     Active Substance: BACLOFEN
     Indication: Product used for unknown indication
     Dosage: 10.0 MILLIGRAM, ONCE A DAY ( 1 EVERY 1 DAYS)
     Route: 048
  17. BECLOMETHASONE DIPROPIONATE [Concomitant]
     Active Substance: BECLOMETHASONE DIPROPIONATE
     Indication: Product used for unknown indication
     Dosage: 4 DOSAGE FORM, 2 EVERY 1 DAYS
     Route: 065
  18. BISACODYL [Concomitant]
     Active Substance: BISACODYL
     Indication: Constipation
     Route: 054
  19. BUSPIRONE [Concomitant]
     Active Substance: BUSPIRONE HYDROCHLORIDE
     Indication: Product used for unknown indication
     Dosage: 10.0 MILLIGRAM, 2 EVERY 1 DAYS
     Route: 048
  20. CALCIUM CARBONATE [Concomitant]
     Active Substance: CALCIUM CARBONATE
     Indication: Product used for unknown indication
     Dosage: 500.0 MILLIGRAM, 2 EVERY 1 DAYS
     Route: 048
  21. CALCIUM CARBONATE [Concomitant]
     Active Substance: CALCIUM CARBONATE
     Indication: Product used for unknown indication
     Dosage: 1250.0 MILLIGRAM, 2 EVERY 1 DAYS
     Route: 065
  22. CHOLECALCIFEROL [Concomitant]
     Active Substance: CHOLECALCIFEROL
     Indication: Product used for unknown indication
     Dosage: 1000 INTERNATIONAL UNIT, TWICE A DAY
     Route: 048
  23. CLEARLAX [Concomitant]
     Active Substance: POLYETHYLENE GLYCOL 3350
     Indication: Constipation
     Dosage: UNK, TWICE A DAY (2 EVERY 1 DAYS)
     Route: 048
  24. DIMENHYDRINATE [Concomitant]
     Active Substance: DIMENHYDRINATE
     Indication: Vomiting
     Dosage: UNK, FOUR TIME A DAY (1 EVERY 6 HOURS)
     Route: 030
  25. DIMENHYDRINATE [Concomitant]
     Active Substance: DIMENHYDRINATE
     Indication: Nausea
  26. DIMENHYDRINATE [Concomitant]
     Active Substance: DIMENHYDRINATE
     Indication: Vomiting
     Route: 065
  27. DIMENHYDRINATE [Concomitant]
     Active Substance: DIMENHYDRINATE
     Indication: Nausea
     Dosage: UNK, FOUR TIME A DAY (1 EVERY 6 HOURS)
     Route: 048
  28. DIMENHYDRINATE [Concomitant]
     Active Substance: DIMENHYDRINATE
     Indication: Vomiting
     Route: 065
  29. DIMENHYDRINATE [Concomitant]
     Active Substance: DIMENHYDRINATE
     Indication: Nausea
  30. DOCUSATE SODIUM [Concomitant]
     Active Substance: DOCUSATE SODIUM
     Indication: Faeces hard
     Dosage: 100.0 MILLIGRAM, TWICE A DAY (2 EVERY 1 DAYS)
     Route: 048
  31. GABAPENTIN [Concomitant]
     Active Substance: GABAPENTIN
     Indication: Product used for unknown indication
     Dosage: 300.0 MILLIGRAM, TWICE A DAY (2 EVERY 1 DAYS)
     Route: 048
  32. GALANTAMINE [Concomitant]
     Active Substance: GALANTAMINE
     Indication: Product used for unknown indication
     Dosage: 8.0 MILLIGRAM, ONCE A DAY (1 EVERY 24 HOURS)
     Route: 048
  33. GLYCERIN [Concomitant]
     Active Substance: GLYCERIN
     Indication: Constipation
     Route: 054
  34. CARBIDOPA AND LEVODOPA [Concomitant]
     Active Substance: CARBIDOPA\LEVODOPA
     Indication: Product used for unknown indication
     Dosage: 1 DOSAGE FORM, THRICE A DAY (3 EVERY 1 DAYS)
     Route: 048
  35. LEVOMEPROMAZINE MALEATE [Concomitant]
     Active Substance: LEVOMEPROMAZINE MALEATE
     Indication: Product used for unknown indication
     Dosage: 10.0 MILLIGRAM, ONCE A DAY (1 EVERY 1 DAYS)
     Route: 048
  36. LORAZEPAM [Concomitant]
     Active Substance: LORAZEPAM
     Indication: Anxiety
     Dosage: 0.5 MILLIGRAM, TWICE A DAY (2 EVERY 1 DAYS)
     Route: 060
  37. Magnesium bisglycinate [Concomitant]
     Indication: Product used for unknown indication
     Dosage: 200.0 MILLIGRAM, ONCE A DAY (1 EVERY 24 HOURS)
     Route: 048
  38. MELATONIN [Concomitant]
     Active Substance: MELATONIN
     Indication: Product used for unknown indication
     Dosage: 3.0 MILLIGRAM, ONCE A DAY ( 1 EVERY 1 DAYS)
     Route: 060
  39. METOPROLOL TARTRATE [Concomitant]
     Active Substance: METOPROLOL TARTRATE
     Indication: Product used for unknown indication
     Dosage: 25.0 MILLIGRAM, TWICE A DAY (2 EVERY 1 DAYS)
     Route: 048
  40. PANTOPRAZOLE MAGNESIUM [Concomitant]
     Active Substance: PANTOPRAZOLE MAGNESIUM
     Indication: Product used for unknown indication
     Dosage: 40 MILLIGRAM, ONCE A DAY (1 EVERY 24 HOURS)
     Route: 048
  41. QUETIAPINE FUMARATE [Concomitant]
     Active Substance: QUETIAPINE FUMARATE
     Indication: Agitation
     Dosage: UNK, EVERY 2 HOUR (1 EVERY 2 HOURS)
     Route: 048
  42. RIBOFLAVIN [Concomitant]
     Active Substance: RIBOFLAVIN
     Indication: Product used for unknown indication
     Dosage: 400.0 MILLIGRAM, ONCE A DAY (1 EVERY 24 HOURS)
     Route: 048
  43. ALBUTEROL [Concomitant]
     Active Substance: ALBUTEROL
     Indication: Product used for unknown indication
     Dosage: 2 DOSAGE FORM, FOUR TIME A DAY (4 EVERY 1 DAYS)
     Route: 065
  44. SENNOSIDES [Concomitant]
     Active Substance: SENNOSIDES
     Indication: Constipation
     Dosage: UNK, ONCE A DAY (1 EVERY 1 DAYS)
     Route: 048
  45. SERTRALINE [Concomitant]
     Active Substance: SERTRALINE HYDROCHLORIDE
     Indication: Product used for unknown indication
     Dosage: 50.0 MILLIGRAM, ONCE A DAY (1 EVERY 24 HOURS)
     Route: 048
  46. SERTRALINE [Concomitant]
     Active Substance: SERTRALINE HYDROCHLORIDE
     Dosage: 200.0 MILLIGRAM, ONCE A DAY (1 EVERY 24 HOUR)
     Route: 048
  47. TOPIRAMATE [Concomitant]
     Active Substance: TOPIRAMATE
     Indication: Product used for unknown indication
     Dosage: 25.0 MILLIGRAM, TWICE A DAY (2 EVERY 1 DAYS)
     Route: 048
  48. TRAZODONE [Concomitant]
     Active Substance: TRAZODONE HYDROCHLORIDE
     Indication: Product used for unknown indication
     Dosage: UNK, EVERY 2 HOUR (1 EVERY 2 HOURS)
     Route: 048
  49. TRAZODONE [Concomitant]
     Active Substance: TRAZODONE HYDROCHLORIDE
     Indication: Insomnia
     Dosage: 50.0 MILLIGRAM, ONCE A DAY (1 EVERY 24 HOURS)
     Route: 048
  50. DIVALPROEX SODIUM [Concomitant]
     Active Substance: DIVALPROEX SODIUM
     Indication: Product used for unknown indication
     Dosage: 750.0 MILLIGRAM, ONCE A DAY (1 EVERY 1 DAYS)
     Route: 048
  51. DIVALPROEX SODIUM [Concomitant]
     Active Substance: DIVALPROEX SODIUM
     Dosage: 500.0 MILLIGRAM, ONCE A DAY (1 EVERY 24 HOURS)
     Route: 048
  52. ZOPICLONE [Concomitant]
     Active Substance: ZOPICLONE
     Indication: Sleep disorder
     Dosage: 7.5 MILLIGRAM, ONCE A DAY (1 EVERY 1 DAYS)
     Route: 048
  53. ZOPICLONE [Concomitant]
     Active Substance: ZOPICLONE
     Dosage: 3.75 MILLIGRAM, ONCE A DAY (1 EVERY 1 DAYS)
     Route: 048

REACTIONS (4)
  - Depressed level of consciousness [Recovering/Resolving]
  - Overdose [Recovering/Resolving]
  - Pneumonia aspiration [Recovering/Resolving]
  - Suicide attempt [Recovering/Resolving]
